FAERS Safety Report 19991709 (Version 2)
Quarter: 2021Q4

REPORT INFORMATION
  Report Type: Spontaneous
  Country: IL (occurrence: IL)
  Receive Date: 20211025
  Receipt Date: 20211026
  Transmission Date: 20220303
  Serious: Yes (Hospitalization, Other)
  Sender: FDA-Public Use
  Company Number: IL-009507513-2110ISR005799

PATIENT
  Age: 61 Year
  Sex: Female

DRUGS (2)
  1. PEMBROLIZUMAB [Suspect]
     Active Substance: PEMBROLIZUMAB
     Indication: Ovarian cancer stage IV
  2. OLAPARIB [Concomitant]
     Active Substance: OLAPARIB
     Indication: Ovarian cancer stage IV

REACTIONS (1)
  - Immune-mediated gastritis [Recovering/Resolving]
